FAERS Safety Report 8624246-1 (Version None)
Quarter: 2012Q3

REPORT INFORMATION
  Report Type: 
  Country: None (occurrence: None)
  Receive Date: 20120824
  Receipt Date: 20120824
  Transmission Date: 20120928
  Serious: Yes (Disabling)
  Sender: FDA-Public Use
  Company Number: None

PATIENT
  Age: 63 Year
  Sex: Female
  Weight: 57.1532 kg

DRUGS (2)
  1. APIDRA [Suspect]
     Indication: TYPE 1 DIABETES MELLITUS
     Dosage: 0-8 UNITS PER INJECTION AM, LUNCH, PM EPIDURAL
     Route: 008
     Dates: start: 20120403, end: 20120823
  2. APIDRA [Suspect]
     Indication: TYPE 1 DIABETES MELLITUS
     Dosage: 0-8 UNITS PER INJECTION AM, LUNCH, PM EPIDURAL
     Route: 008
     Dates: start: 20120801, end: 20120823

REACTIONS (1)
  - DRUG EFFECT DECREASED [None]
